FAERS Safety Report 9643921 (Version 1)
Quarter: 2013Q4

REPORT INFORMATION
  Report Type: Spontaneous
  Country: PL (occurrence: None)
  Receive Date: 20131023
  Receipt Date: 20131023
  Transmission Date: 20140711
  Serious: Yes (Hospitalization, Other)
  Sender: FDA-Public Use
  Company Number: IMP_06850_2013

PATIENT
  Age: 39 Year
  Sex: Male

DRUGS (2)
  1. METHYLTESTOSTERONE [Suspect]
     Indication: MUSCULAR WEAKNESS
     Dosage: AGO DF INTRAMUSCULAR, HIGH DOSE DF INTRAMUSCLAR
     Route: 030
  2. LEVOTHYROXINE [Concomitant]

REACTIONS (8)
  - Hypothyroidism [None]
  - Hyperthyroidism [None]
  - Muscle hypertrophy [None]
  - Aspartate aminotransferase increased [None]
  - Alanine aminotransferase increased [None]
  - Polycythaemia [None]
  - Thyroid function test abnormal [None]
  - Thyroxin binding globulin decreased [None]
